FAERS Safety Report 5004839-3 (Version None)
Quarter: 2006Q2

REPORT INFORMATION
  Report Type: 
  Country: None (occurrence: None)
  Receive Date: 20060517
  Receipt Date: 20051115
  Transmission Date: 20061013
  Serious: Yes (Hospitalization, Disabling)
  Sender: FDA-Public Use
  Company Number: US-MERCK-0511USA02480

PATIENT
  Age: 65 Year
  Sex: Female
  Weight: 50 kg

DRUGS (27)
  1. NORVASC [Concomitant]
     Route: 065
     Dates: start: 19970101, end: 20030101
  2. ELAVIL [Concomitant]
     Route: 048
  3. VIOXX [Suspect]
     Indication: BACK PAIN
     Route: 048
     Dates: start: 20000101, end: 20040101
  4. VIOXX [Suspect]
     Indication: ARTHRITIS
     Route: 048
     Dates: start: 20000101, end: 20040101
  5. TEQUIN [Concomitant]
     Route: 065
  6. AVELOX [Concomitant]
     Route: 065
  7. NASONEX [Concomitant]
     Route: 065
  8. CLARINEX [Concomitant]
     Indication: SEASONAL ALLERGY
     Route: 065
  9. GUAIFENESIN [Concomitant]
     Route: 065
  10. CLARITIN [Concomitant]
     Route: 065
  11. PERIACTIN [Concomitant]
     Route: 048
  12. SEREVENT [Concomitant]
     Route: 065
  13. COMBIVENT [Concomitant]
     Indication: CHRONIC OBSTRUCTIVE PULMONARY DISEASE
     Route: 055
  14. ZITHROMAX [Concomitant]
     Route: 065
  15. FLEXERIL [Concomitant]
     Indication: PAIN
     Route: 048
  16. ADVIL [Concomitant]
     Route: 065
     Dates: start: 19950101, end: 20020101
  17. METHADONE HYDROCHLORIDE [Concomitant]
     Indication: PAIN
     Route: 065
     Dates: start: 20010101, end: 20050101
  18. WELLBUTRIN [Concomitant]
     Indication: DEPRESSION
     Route: 065
     Dates: start: 20020101, end: 20030101
  19. WELLBUTRIN [Concomitant]
     Indication: ANXIETY
     Route: 065
     Dates: start: 20020101, end: 20030101
  20. ASPIRIN [Concomitant]
     Route: 065
     Dates: start: 19990101, end: 20040101
  21. ZESTRIL [Concomitant]
     Indication: HYPERTENSION
     Route: 065
     Dates: start: 20000101, end: 20030101
  22. HYDROCHLOROTHIAZIDE [Concomitant]
     Route: 065
  23. NASACORT [Concomitant]
     Route: 065
  24. SYNTHROID [Concomitant]
     Route: 065
  25. MEGACE [Concomitant]
     Route: 065
  26. ALLEGRA [Concomitant]
     Route: 065
  27. FORADIL [Concomitant]
     Route: 065

REACTIONS (13)
  - ACUTE MYOCARDIAL INFARCTION [None]
  - ARTERIOSCLEROSIS CORONARY ARTERY [None]
  - BLOOD POTASSIUM DECREASED [None]
  - DEPRESSION [None]
  - FALL [None]
  - GASTROOESOPHAGEAL REFLUX DISEASE [None]
  - HAEMATOCRIT DECREASED [None]
  - HAEMOGLOBIN DECREASED [None]
  - HEPATIC CIRRHOSIS [None]
  - HIP FRACTURE [None]
  - HYPERTENSION [None]
  - LUNG NEOPLASM [None]
  - URINARY TRACT INFECTION [None]
